FAERS Safety Report 5411143-8 (Version None)
Quarter: 2007Q3

REPORT INFORMATION
  Report Type: 
  Country: None (occurrence: None)
  Receive Date: 20070808
  Receipt Date: 20070725
  Transmission Date: 20080115
  Serious: Yes (Hospitalization)
  Sender: FDA-Public Use
  Company Number: 159388ISR

PATIENT
  Age: 78 Year
  Sex: Female

DRUGS (5)
  1. SIMVASTATIN [Suspect]
     Dosage: 40 MG
  2. PHENYTOIN [Suspect]
     Dosage: 600 MG
  3. BISOPROLOL [Concomitant]
  4. BENDROFLUMETHIAZIDE [Concomitant]
  5. ASPIRIN [Concomitant]

REACTIONS (7)
  - BLOOD CHOLESTEROL INCREASED [None]
  - COORDINATION ABNORMAL [None]
  - DRUG DOSE OMISSION [None]
  - DRUG INTERACTION [None]
  - DRUG LEVEL INCREASED [None]
  - DRUG TOXICITY [None]
  - INCORRECT DOSE ADMINISTERED [None]
